FAERS Safety Report 25042183 (Version 3)
Quarter: 2025Q2

REPORT INFORMATION
  Report Type: Spontaneous
  Country: PL (occurrence: PL)
  Receive Date: 20250305
  Receipt Date: 20250512
  Transmission Date: 20250716
  Serious: Yes (Hospitalization, Other)
  Sender: MYLAN
  Company Number: PL-RICHTER-2025-GR-001639

PATIENT
  Age: 30 Year
  Sex: Male
  Weight: 117.9 kg

DRUGS (1)
  1. PAROXETINE [Suspect]
     Active Substance: PAROXETINE
     Indication: Depression

REACTIONS (4)
  - Obesity [Recovering/Resolving]
  - Metabolic dysfunction-associated steatohepatitis [Unknown]
  - Hyperuricaemia [Unknown]
  - Alanine aminotransferase increased [Unknown]
